FAERS Safety Report 8843421 (Version 2)
Quarter: 2012Q4

REPORT INFORMATION
  Report Type: 
  Country: BR (occurrence: BR)
  Receive Date: 20121016
  Receipt Date: 20121105
  Transmission Date: 20130627
  Serious: Yes (Hospitalization, Other)
  Sender: FDA-Public Use
  Company Number: BR-ELI_LILLY_AND_COMPANY-BR201210002164

PATIENT
  Sex: Male
  Weight: 83 kg

DRUGS (9)
  1. HUMULIN NPH [Suspect]
     Indication: DIABETES MELLITUS
     Dosage: 20 IU, bid
     Route: 058
     Dates: start: 201010
  2. HUMULIN NPH [Suspect]
     Dosage: 20 IU, bid
     Route: 058
     Dates: start: 201010
  3. GLIMEPIRIDE [Concomitant]
     Indication: DIABETES MELLITUS
     Dosage: 2 mg, tid
     Route: 065
  4. METFORMIN [Concomitant]
     Indication: DIABETES MELLITUS
     Dosage: 850 mg, tid
     Route: 065
  5. CARVEDILOL [Concomitant]
     Indication: CARDIAC DISORDER
     Dosage: 25 mg, bid
     Route: 065
  6. AAS [Concomitant]
     Indication: CARDIAC DISORDER
     Dosage: UNK UNK, qd
     Route: 065
  7. SINVASTATINA [Concomitant]
     Indication: CARDIAC DISORDER
     Dosage: UNK UNK, each evening
     Route: 065
  8. HUMULIN R [Concomitant]
     Dosage: UNK, unknown
     Route: 065
  9. ATORVASTATIN [Concomitant]
     Indication: CARDIAC DISORDER
     Dosage: 40 mg, each evening
     Route: 065

REACTIONS (5)
  - Coronary artery bypass [Not Recovered/Not Resolved]
  - Infarction [Not Recovered/Not Resolved]
  - Cardiac aneurysm [Not Recovered/Not Resolved]
  - No therapeutic response [Not Recovered/Not Resolved]
  - Blood glucose abnormal [Not Recovered/Not Resolved]
